FAERS Safety Report 24665015 (Version 1)
Quarter: 2024Q4

REPORT INFORMATION
  Report Type: Spontaneous
  Country: FR (occurrence: FR)
  Receive Date: 20241126
  Receipt Date: 20241126
  Transmission Date: 20250115
  Serious: Yes (Disabling)
  Sender: PFIZER
  Company Number: None

PATIENT
  Age: 66 Year
  Sex: Male
  Weight: 79 kg

DRUGS (2)
  1. RUXIENCE [Suspect]
     Active Substance: RITUXIMAB-PVVR
     Indication: Graft versus host disease
     Dosage: 375 MG/M2, CYCLIC
     Route: 042
     Dates: start: 20240521, end: 20240611
  2. POSACONAZOLE [Suspect]
     Active Substance: POSACONAZOLE
     Indication: Stem cell transplant
     Dosage: 200 MG, 1X/DAY
     Route: 048
     Dates: start: 20240409, end: 20240611

REACTIONS (2)
  - Polyneuropathy [Not Recovered/Not Resolved]
  - Off label use [Unknown]

NARRATIVE: CASE EVENT DATE: 20240521
